FAERS Safety Report 13669687 (Version 3)
Quarter: 2017Q3

REPORT INFORMATION
  Report Type: Report from Study
  Country: US (occurrence: US)
  Receive Date: 20170620
  Receipt Date: 20170705
  Transmission Date: 20171127
  Serious: Yes (Hospitalization, Other)
  Sender: FDA-Public Use
  Company Number: US-GILEAD-2017-0279022

PATIENT
  Age: 25 Year
  Sex: Female

DRUGS (2)
  1. VELETRI [Concomitant]
     Active Substance: EPOPROSTENOL
  2. AMBRISENTAN [Suspect]
     Active Substance: AMBRISENTAN
     Indication: PRODUCT USED FOR UNKNOWN INDICATION
     Dosage: 10 MG, QD
     Route: 065

REACTIONS (4)
  - Central venous catheterisation [Recovered/Resolved]
  - Catheter site pain [Not Recovered/Not Resolved]
  - Central venous catheter removal [Unknown]
  - Device malfunction [Unknown]

NARRATIVE: CASE EVENT DATE: 201706
